FAERS Safety Report 21313294 (Version 1)
Quarter: 2022Q3

REPORT INFORMATION
  Report Type: Spontaneous
  Country: US (occurrence: None)
  Receive Date: 20220909
  Receipt Date: 20220909
  Transmission Date: 20221026
  Serious: Yes (Hospitalization)
  Sender: FDA-Public Use
  Company Number: 2022A305413

PATIENT
  Age: 66 Year
  Sex: Male
  Weight: 154.2 kg

DRUGS (1)
  1. BYDUREON BCISE [Suspect]
     Active Substance: EXENATIDE
     Indication: Type 2 diabetes mellitus
     Route: 058

REACTIONS (8)
  - Pneumonia [Unknown]
  - Choking [Unknown]
  - Blood glucose abnormal [Unknown]
  - Limb discomfort [Recovered/Resolved]
  - Pain in extremity [Unknown]
  - Oesophageal disorder [Unknown]
  - Food craving [Unknown]
  - Memory impairment [Unknown]

NARRATIVE: CASE EVENT DATE: 20210101
